FAERS Safety Report 8356240 (Version 2)
Quarter: 2013Q2

REPORT INFORMATION
  Report Type: Spontaneous
  Country: US (occurrence: None)
  Receive Date: 20111221
  Receipt Date: 20121227
  Transmission Date: 20140414
  Serious: Yes (Hospitalization)
  Sender: FDA-Public Use
  Company Number: PHHY2011US54138

PATIENT
  Age: 38 Year
  Sex: Female

DRUGS (1)
  1. EXJADE [Suspect]
     Route: 048
     Dates: start: 20110610

REACTIONS (4)
  - DECREASED APPETITE [None]
  - OEDEMA PERIPHERAL [None]
  - SKIN DISCOLOURATION [None]
  - SICKLE CELL ANAEMIA WITH CRISIS [None]
